FAERS Safety Report 12133630 (Version 4)
Quarter: 2016Q2

REPORT INFORMATION
  Report Type: Spontaneous
  Country: JP (occurrence: JP)
  Receive Date: 20160301
  Receipt Date: 20160614
  Transmission Date: 20160815
  Serious: Yes (Hospitalization)
  Sender: FDA-Public Use
  Company Number: PHJP2016JP003941

PATIENT
  Age: 66 Year
  Sex: Male

DRUGS (8)
  1. NEORAL [Suspect]
     Active Substance: CYCLOSPORINE
     Indication: SKIN ULCER
     Dosage: 300 MG, QD
     Route: 048
  2. NEORAL [Suspect]
     Active Substance: CYCLOSPORINE
     Indication: PYODERMA GANGRENOSUM
  3. SOLU-MEDROL [Suspect]
     Active Substance: METHYLPREDNISOLONE SODIUM SUCCINATE
     Indication: PYODERMA GANGRENOSUM
  4. METRONIDAZOLE. [Suspect]
     Active Substance: METRONIDAZOLE
     Indication: AMOEBIASIS
     Dosage: 2250 MG, QD
     Route: 048
  5. PREDNISOLONE. [Suspect]
     Active Substance: PREDNISOLONE
     Indication: PYODERMA GANGRENOSUM
  6. PREDNISOLONE. [Suspect]
     Active Substance: PREDNISOLONE
     Indication: SKIN ULCER
     Dosage: 60 MG, QD
     Route: 048
  7. SOLU-MEDROL [Suspect]
     Active Substance: METHYLPREDNISOLONE SODIUM SUCCINATE
     Indication: SKIN ULCER
     Dosage: 1000 MG, QD
     Route: 065
  8. METRONIDAZOLE. [Suspect]
     Active Substance: METRONIDAZOLE
     Indication: ULCER
     Dosage: UNK
     Route: 061

REACTIONS (6)
  - Drug ineffective for unapproved indication [Unknown]
  - Cytomegalovirus infection [Unknown]
  - Drug resistance [Unknown]
  - Amoebic skin ulcer [Recovering/Resolving]
  - Drug-induced liver injury [Unknown]
  - Staphylococcal infection [Unknown]
